FAERS Safety Report 9164964 (Version 1)
Quarter: 2013Q1

REPORT INFORMATION
  Report Type: Spontaneous
  Country: US (occurrence: None)
  Receive Date: 20130301
  Receipt Date: 20130301
  Transmission Date: 20140127
  Serious: Yes (Hospitalization)
  Sender: FDA-Public Use
  Company Number: 2013AP003293

PATIENT
  Age: 65 Year
  Sex: Female

DRUGS (5)
  1. PANTOPRAZOLE (PANTOPRAZOLE) [Suspect]
     Indication: HIATUS HERNIA
     Dosage: TAB;PO;
     Route: 048
     Dates: start: 20130210, end: 20130210
  2. UNSPECIFIED INGREDIENT [Suspect]
     Indication: OROPHARYNGEAL PAIN
     Route: 048
     Dates: start: 20130210, end: 20130210
  3. GOLA ACTION (DIFFLAM MOUTH) [Concomitant]
  4. EUTIROX (LEVOTHYROXINE SODIUM) [Concomitant]
  5. KAFENAC (ACECLOFENAC) [Suspect]

REACTIONS (2)
  - Dyspnoea [None]
  - Laryngeal oedema [None]
